FAERS Safety Report 16977309 (Version 17)
Quarter: 2021Q3

REPORT INFORMATION
  Report Type: Report from Study
  Country: CA (occurrence: CA)
  Receive Date: 20191031
  Receipt Date: 20210922
  Transmission Date: 20211014
  Serious: Yes (Other)
  Sender: FDA-Public Use
  Company Number: CA-TAKEDA-2019TUS038200

PATIENT
  Age: 57 Year
  Sex: Male

DRUGS (14)
  1. VEDOLIZUMAB [Suspect]
     Active Substance: VEDOLIZUMAB
     Dosage: 300 MILLIGRAM
     Route: 042
  2. METFORMIN [Concomitant]
     Active Substance: METFORMIN HYDROCHLORIDE
     Dosage: 500 MILLIGRAM, BID
     Dates: start: 201710
  3. VEDOLIZUMAB [Suspect]
     Active Substance: VEDOLIZUMAB
     Dosage: 300 MILLIGRAM
     Route: 042
  4. VEDOLIZUMAB [Suspect]
     Active Substance: VEDOLIZUMAB
     Indication: CROHN^S DISEASE
     Dosage: 300 MILLIGRAM
     Route: 042
     Dates: start: 20190511
  5. VEDOLIZUMAB [Suspect]
     Active Substance: VEDOLIZUMAB
     Dosage: 300 MILLIGRAM
     Route: 042
  6. VEDOLIZUMAB [Suspect]
     Active Substance: VEDOLIZUMAB
     Dosage: 300 MILLIGRAM
     Route: 042
  7. VEDOLIZUMAB [Suspect]
     Active Substance: VEDOLIZUMAB
     Dosage: 300 MILLIGRAM
     Route: 042
  8. VEDOLIZUMAB [Suspect]
     Active Substance: VEDOLIZUMAB
     Dosage: 300 MILLIGRAM
     Route: 042
  9. VEDOLIZUMAB [Suspect]
     Active Substance: VEDOLIZUMAB
     Dosage: 300 MILLIGRAM
     Route: 042
  10. PREDNISONE. [Concomitant]
     Active Substance: PREDNISONE
     Dosage: UNK
  11. IMURAN [Concomitant]
     Active Substance: AZATHIOPRINE
     Dosage: UNK
  12. HUMIRA [Concomitant]
     Active Substance: ADALIMUMAB
     Dosage: UNK
  13. VEDOLIZUMAB [Suspect]
     Active Substance: VEDOLIZUMAB
     Dosage: 300 MILLIGRAM
     Route: 042
  14. GLEEVEC [Concomitant]
     Active Substance: IMATINIB MESYLATE
     Indication: GASTROINTESTINAL STROMAL TUMOUR
     Dosage: UNK
     Dates: start: 20190129

REACTIONS (21)
  - Musculoskeletal chest pain [Unknown]
  - Cough [Unknown]
  - Metastases to liver [Unknown]
  - Ear pain [Unknown]
  - Toothache [Unknown]
  - Hypoaesthesia [Recovered/Resolved]
  - Diarrhoea [Not Recovered/Not Resolved]
  - Illness [Unknown]
  - Decreased appetite [Not Recovered/Not Resolved]
  - Tooth extraction [Unknown]
  - Drug ineffective [Unknown]
  - Gingival pain [Unknown]
  - Constipation [Unknown]
  - Nausea [Not Recovered/Not Resolved]
  - Middle insomnia [Not Recovered/Not Resolved]
  - Abdominal discomfort [Not Recovered/Not Resolved]
  - Weight decreased [Unknown]
  - Crohn^s disease [Not Recovered/Not Resolved]
  - Dental caries [Unknown]
  - Respiratory disorder [Unknown]
  - Abdominal pain [Unknown]

NARRATIVE: CASE EVENT DATE: 20190620
